FAERS Safety Report 18731314 (Version 1)
Quarter: 2021Q1

REPORT INFORMATION
  Report Type: Spontaneous
  Country: DK (occurrence: DK)
  Receive Date: 20210112
  Receipt Date: 20210112
  Transmission Date: 20210419
  Serious: Yes (Other)
  Sender: FDA-Public Use
  Company Number: NVSC2020DK272001

PATIENT
  Age: 25 Year
  Sex: Male

DRUGS (15)
  1. DICLOXACILLIN [Suspect]
     Active Substance: DICLOXACILLIN
     Indication: HIDRADENITIS
     Dosage: UNK
     Route: 065
  2. GUSELKUMAB [Suspect]
     Active Substance: GUSELKUMAB
     Indication: HIDRADENITIS
     Dosage: 100 MILLIGRAM AT WEEK ZERO
     Route: 058
     Dates: start: 201904
  3. PENICILLINE [Suspect]
     Active Substance: PENICILLIN G
     Indication: HIDRADENITIS
     Dosage: UNK
     Route: 065
  4. GUSELKUMAB [Suspect]
     Active Substance: GUSELKUMAB
     Dosage: 100 MG, 8 TIMES A WEEK (MAINTENANCE DOSE)
     Route: 058
  5. METRONIDAZOLE. [Suspect]
     Active Substance: METRONIDAZOLE
     Indication: HIDRADENITIS
     Dosage: UNKNOWN
     Route: 065
  6. GUSELKUMAB [Suspect]
     Active Substance: GUSELKUMAB
     Dosage: 100 MG AT WEEK FOUR
     Route: 058
  7. TETRACYCLINE [Suspect]
     Active Substance: TETRACYCLINE
     Indication: HIDRADENITIS
     Dosage: UNK
     Route: 065
  8. DOXYCYCLINE. [Suspect]
     Active Substance: DOXYCYCLINE
     Indication: HIDRADENITIS
     Dosage: UNK
     Route: 065
  9. GUSELKUMAB [Suspect]
     Active Substance: GUSELKUMAB
     Dosage: 100 MG, QW61D
     Route: 058
  10. RIFAMPICIN [Suspect]
     Active Substance: RIFAMPIN
     Indication: HIDRADENITIS
     Dosage: UNK
     Route: 065
  11. AZATHIOPRINE. [Suspect]
     Active Substance: AZATHIOPRINE
     Indication: HIDRADENITIS
     Dosage: UNK
     Route: 065
  12. CLINDAMYCIN. [Suspect]
     Active Substance: CLINDAMYCIN
     Indication: HIDRADENITIS
     Dosage: UNK
     Route: 065
  13. ADALIMUMAB [Suspect]
     Active Substance: ADALIMUMAB
     Indication: HIDRADENITIS
     Dosage: UNK
     Route: 065
  14. CIPROFLOXACIN HYDROCHLORIDE. [Suspect]
     Active Substance: CIPROFLOXACIN HYDROCHLORIDE
     Indication: HIDRADENITIS
     Dosage: UNKNOWN
     Route: 065
  15. USTEKINUMAB [Suspect]
     Active Substance: USTEKINUMAB
     Indication: HIDRADENITIS
     Dosage: UNK
     Route: 065

REACTIONS (4)
  - Hidradenitis [Recovering/Resolving]
  - Pyrexia [Unknown]
  - Abdominal pain [Unknown]
  - Drug ineffective [Unknown]
